FAERS Safety Report 4516579-5 (Version None)
Quarter: 2004Q4

REPORT INFORMATION
  Report Type: 
  Country: None (occurrence: None)
  Receive Date: 20041202
  Receipt Date: 20040422
  Transmission Date: 20050328
  Serious: Yes (Disabling)
  Sender: FDA-Public Use
  Company Number: IT-BRISTOL-MYERS SQUIBB COMPANY-12567194

PATIENT
  Age: 56 Year
  Sex: Female

DRUGS (7)
  1. CYTOXAN [Suspect]
     Indication: BREAST CANCER
     Route: 042
     Dates: start: 20031104
  2. EPIRUBICIN [Suspect]
     Indication: BREAST CANCER
     Route: 042
     Dates: start: 20031104
  3. NEULASTA [Suspect]
     Indication: BREAST CANCER
     Route: 058
     Dates: start: 20031104
  4. FLUOROURACIL [Concomitant]
     Dates: start: 20031104
  5. ONDANSETRON [Concomitant]
  6. DEXAMETHASONE [Concomitant]
  7. DOMPERIDONE [Concomitant]

REACTIONS (1)
  - THROMBOPHLEBITIS [None]
